FAERS Safety Report 24306622 (Version 4)
Quarter: 2025Q3

REPORT INFORMATION
  Report Type: Report from Study
  Country: US (occurrence: US)
  Receive Date: 20240911
  Receipt Date: 20250816
  Transmission Date: 20251020
  Serious: No
  Sender: ALEXION PHARMACEUTICALS
  Company Number: US-AstraZeneca-CH-00701572A

PATIENT
  Age: 48 Year
  Sex: Female
  Weight: 61.678 kg

DRUGS (5)
  1. STRENSIQ [Suspect]
     Active Substance: ASFOTASE ALFA
     Indication: Hypophosphatasia
     Dosage: 2 MILLIGRAM/KILOGRAM, 72 QW
     Dates: start: 202408
  2. VYVANSE [Concomitant]
     Active Substance: LISDEXAMFETAMINE DIMESYLATE
     Route: 065
  3. ATIVAN [Concomitant]
     Active Substance: LORAZEPAM
     Route: 065
  4. ESTRADIOL [Concomitant]
     Active Substance: ESTRADIOL
     Route: 065
  5. PROGESTERONE [Concomitant]
     Active Substance: PROGESTERONE
     Route: 065

REACTIONS (11)
  - Fatigue [Unknown]
  - Alopecia [Unknown]
  - Dehydration [Not Recovered/Not Resolved]
  - Thirst [Not Recovered/Not Resolved]
  - Asthenia [Unknown]
  - Dizziness [Unknown]
  - Pollakiuria [Unknown]
  - Nephropathy [Unknown]
  - Nausea [Unknown]
  - Polydipsia [Unknown]
  - Injection site reaction [Unknown]

NARRATIVE: CASE EVENT DATE: 20240911
